FAERS Safety Report 12195725 (Version 2)
Quarter: 2016Q2

REPORT INFORMATION
  Report Type: Report from Study
  Country: BR (occurrence: BR)
  Receive Date: 20160321
  Receipt Date: 20160418
  Transmission Date: 20160815
  Serious: Yes (Hospitalization)
  Sender: FDA-Public Use
  Company Number: PHHY2016BR034778

PATIENT
  Sex: Male
  Weight: 35 kg

DRUGS (2)
  1. EXJADE [Suspect]
     Active Substance: DEFERASIROX
     Indication: SICKLE CELL ANAEMIA
     Dosage: 20 MG/KG, QD (750 MG)
     Route: 048
  2. ACIDO FOLICO//FOLIC ACID [Concomitant]
     Active Substance: FOLIC ACID
     Indication: IRON OVERLOAD
     Dosage: 1 DF, QD
     Route: 048
     Dates: start: 2000

REACTIONS (4)
  - Hypokinesia [Recovering/Resolving]
  - Hemiplegia [Unknown]
  - Cerebrovascular accident [Recovering/Resolving]
  - Decreased appetite [Unknown]

NARRATIVE: CASE EVENT DATE: 2010
